FAERS Safety Report 10189809 (Version 1)
Quarter: 2014Q2

REPORT INFORMATION
  Report Type: Spontaneous
  Country: US (occurrence: US)
  Receive Date: 20140522
  Receipt Date: 20140522
  Transmission Date: 20141212
  Serious: Yes (Hospitalization)
  Sender: FDA-Public Use
  Company Number: US-SA-2013SA120806

PATIENT
  Sex: 0

DRUGS (2)
  1. LANTUS [Suspect]
     Route: 065
     Dates: start: 20130312
  2. HUMALOG [Suspect]
     Route: 065
     Dates: start: 20130312

REACTIONS (2)
  - Hypoglycaemic seizure [Recovered/Resolved]
  - Medication error [Unknown]
